FAERS Safety Report 11047170 (Version 2)
Quarter: 2015Q2

REPORT INFORMATION
  Report Type: Report from Study
  Country: US (occurrence: US)
  Receive Date: 20150420
  Receipt Date: 20150522
  Transmission Date: 20150821
  Serious: Yes (Hospitalization)
  Sender: FDA-Public Use
  Company Number: US-BIOGENIDEC-2015BI050622

PATIENT
  Age: 58 Year
  Sex: Male

DRUGS (1)
  1. AVONEX [Suspect]
     Active Substance: INTERFERON BETA-1A
     Indication: MULTIPLE SCLEROSIS
     Route: 030
     Dates: start: 20150221

REACTIONS (6)
  - Syncope [Recovered/Resolved]
  - Nodule [Unknown]
  - Fall [Recovered/Resolved]
  - Post concussion syndrome [Not Recovered/Not Resolved]
  - Dyspnoea [Not Recovered/Not Resolved]
  - Psoriatic arthropathy [Unknown]

NARRATIVE: CASE EVENT DATE: 20150408
